FAERS Safety Report 15761487 (Version 1)
Quarter: 2018Q4

REPORT INFORMATION
  Report Type: Spontaneous
  Country: US (occurrence: US)
  Receive Date: 20181226
  Receipt Date: 20181226
  Transmission Date: 20190205
  Serious: Yes (Hospitalization, Disabling, Other)
  Sender: FDA-Public Use
  Company Number: US-JNJFOC-20181228762

PATIENT
  Age: 55 Year
  Sex: Female

DRUGS (1)
  1. INVOKANA [Suspect]
     Active Substance: CANAGLIFLOZIN
     Indication: TYPE 2 DIABETES MELLITUS
     Route: 048
     Dates: start: 20160212

REACTIONS (6)
  - Acute kidney injury [Recovering/Resolving]
  - Leg amputation [Unknown]
  - Osteomyelitis [Unknown]
  - Pyelonephritis [Unknown]
  - Gangrene [Unknown]
  - Localised infection [Unknown]

NARRATIVE: CASE EVENT DATE: 201610
